FAERS Safety Report 16011606 (Version 2)
Quarter: 2019Q1

REPORT INFORMATION
  Report Type: Spontaneous
  Country: US (occurrence: US)
  Receive Date: 20190227
  Receipt Date: 20190318
  Transmission Date: 20190418
  Serious: No
  Sender: FDA-Public Use
  Company Number: US-PFIZER INC-2018436342

PATIENT
  Age: 47 Year
  Sex: Female
  Weight: 99.34 kg

DRUGS (3)
  1. TYLENOL 8HR [Concomitant]
     Active Substance: ACETAMINOPHEN
     Dosage: 1300 MG, UNK (2 AT A TIME AND THEY^RE 8 HOUR TABLETS)
  2. ADVIL [IBUPROFEN] [Concomitant]
     Active Substance: IBUPROFEN
     Dosage: 800 MG, UNK
  3. LYRICA [Suspect]
     Active Substance: PREGABALIN
     Indication: NEUROPATHY PERIPHERAL
     Dosage: 50 MG, 4X/DAY

REACTIONS (7)
  - Intentional product misuse [Unknown]
  - Paraesthesia [Recovering/Resolving]
  - Somnolence [Recovering/Resolving]
  - Product use issue [Unknown]
  - Pain in extremity [Recovering/Resolving]
  - Burning sensation [Recovering/Resolving]
  - Inflammatory marker increased [Unknown]
